FAERS Safety Report 23029227 (Version 2)
Quarter: 2023Q4

REPORT INFORMATION
  Report Type: Spontaneous
  Country: ES (occurrence: ES)
  Receive Date: 20231004
  Receipt Date: 20231006
  Transmission Date: 20240109
  Serious: Yes (Other)
  Sender: FDA-Public Use
  Company Number: ES-SANDOZ-SDZ2023ES037483

PATIENT
  Age: 5 Year
  Sex: Female

DRUGS (1)
  1. ENOXAPARIN SODIUM [Suspect]
     Active Substance: ENOXAPARIN SODIUM
     Indication: Cerebral venous thrombosis
     Dosage: 1 MG/KG, Q12H
     Route: 065

REACTIONS (4)
  - Intracranial pressure increased [Unknown]
  - Loss of consciousness [Unknown]
  - Seizure [Unknown]
  - Product use issue [Unknown]
